FAERS Safety Report 7341845-8 (Version None)
Quarter: 2011Q1

REPORT INFORMATION
  Report Type: 
  Country: None (occurrence: None)
  Receive Date: 20110309
  Receipt Date: 20110224
  Transmission Date: 20110831
  Serious: No
  Sender: FDA-Public Use
  Company Number: FR-ELI_LILLY_AND_COMPANY-FR201103000144

PATIENT
  Sex: Female

DRUGS (2)
  1. CYMBALTA [Suspect]
     Dosage: UNK, UNKNOWN
     Route: 048
  2. CYMBALTA [Suspect]
     Indication: INSOMNIA
     Dosage: UNK, UNKNOWN
     Route: 048
     Dates: start: 20090801

REACTIONS (7)
  - ERUCTATION [None]
  - MUSCLE SPASMS [None]
  - NAUSEA [None]
  - CRYING [None]
  - SOMNOLENCE [None]
  - ANXIETY [None]
  - HEPATOMEGALY [None]
